FAERS Safety Report 5947307-4 (Version None)
Quarter: 2008Q4

REPORT INFORMATION
  Report Type: 
  Country: None (occurrence: None)
  Receive Date: 20081110
  Receipt Date: 20081030
  Transmission Date: 20090506
  Serious: Yes (Other)
  Sender: FDA-Public Use
  Company Number: JP-PFIZER INC-2008087719

PATIENT
  Age: 87 Year
  Sex: Female
  Weight: 40 kg

DRUGS (3)
  1. XALATAN [Suspect]
     Indication: NORMAL TENSION GLAUCOMA
     Route: 031
     Dates: start: 20081004, end: 20081005
  2. FLUMETHOLON [Concomitant]
     Route: 031
     Dates: start: 20081004
  3. HYALEIN [Concomitant]
     Route: 031
     Dates: start: 20081004

REACTIONS (1)
  - SKIN ATROPHY [None]
